FAERS Safety Report 6312834-7 (Version None)
Quarter: 2009Q3

REPORT INFORMATION
  Report Type: 
  Country: None (occurrence: None)
  Receive Date: 20090818
  Receipt Date: 20090804
  Transmission Date: 20100115
  Serious: Yes (Hospitalization, Other)
  Sender: FDA-Public Use
  Company Number: TW-JNJFOC-20090802928

PATIENT
  Age: 21 Year
  Sex: Female
  Weight: 90 kg

DRUGS (8)
  1. RISPERDAL [Suspect]
     Dosage: HS
     Route: 048
  2. RISPERDAL [Suspect]
     Route: 048
  3. RISPERDAL [Suspect]
     Indication: SCHIZOPHRENIA
     Dosage: HS
     Route: 048
  4. RISPERDAL CONSTA [Suspect]
     Indication: SCHIZOPHRENIA
     Route: 030
  5. FLUOXETINE [Concomitant]
     Route: 048
  6. FLUOXETINE [Concomitant]
     Indication: SCHIZOPHRENIA
     Route: 048
  7. ESTAZOLAM [Concomitant]
     Dosage: HS
     Route: 048
  8. ESTAZOLAM [Concomitant]
     Dosage: HS
     Route: 048

REACTIONS (3)
  - HYPERPROLACTINAEMIA [None]
  - INCREASED APPETITE [None]
  - MENTAL DISORDER [None]
